FAERS Safety Report 10146303 (Version 1)
Quarter: 2014Q2

REPORT INFORMATION
  Report Type: Spontaneous
  Country: FR (occurrence: FR)
  Receive Date: 20140501
  Receipt Date: 20140501
  Transmission Date: 20141212
  Serious: Yes (Hospitalization)
  Sender: FDA-Public Use
  Company Number: FR-SA-2014SA051202

PATIENT
  Age: 81 Year
  Sex: Male

DRUGS (6)
  1. LASILIX [Suspect]
     Indication: PRODUCT USED FOR UNKNOWN INDICATION
     Route: 048
  2. AMLODIPINE (SALT NOT SPECIFIED) [Suspect]
     Indication: PRODUCT USED FOR UNKNOWN INDICATION
     Route: 048
  3. METFORMIN [Concomitant]
  4. FOLIC ACID [Concomitant]
  5. DOLIPRANE [Concomitant]
  6. ATORVASTATIN [Concomitant]

REACTIONS (1)
  - Fall [Recovered/Resolved]
